FAERS Safety Report 13451537 (Version 1)
Quarter: 2017Q2

REPORT INFORMATION
  Report Type: Report from Study
  Country: CZ (occurrence: CZ)
  Receive Date: 20170418
  Receipt Date: 20170418
  Transmission Date: 20170830
  Serious: Yes (Hospitalization)
  Sender: FDA-Public Use
  Company Number: CZ-ROCHE-1718920

PATIENT
  Age: 50 Year
  Sex: Female
  Weight: 78 kg

DRUGS (57)
  1. DIAZEPAM. [Concomitant]
     Active Substance: DIAZEPAM
     Route: 065
     Dates: start: 20140306, end: 20140308
  2. COTRIMOXAZOLE [Concomitant]
     Active Substance: SULFAMETHOXAZOLE\TRIMETHOPRIM
     Route: 065
     Dates: start: 20131006, end: 20131015
  3. FRAXIPARINE [Concomitant]
     Active Substance: NADROPARIN CALCIUM
     Route: 065
     Dates: start: 20150218, end: 20150222
  4. COPAXONE [Concomitant]
     Active Substance: GLATIRAMER ACETATE
     Route: 065
     Dates: start: 20150422
  5. CLARITINE [Concomitant]
     Active Substance: LORATADINE
     Route: 065
     Dates: start: 20130324
  6. SOLU-MEDROL [Concomitant]
     Active Substance: METHYLPREDNISOLONE SODIUM SUCCINATE
     Route: 065
     Dates: start: 20150709, end: 20150710
  7. PREDNISONE. [Concomitant]
     Active Substance: PREDNISONE
     Route: 065
     Dates: start: 20150217, end: 20150218
  8. NEURONTIN (CZECH REPUBLIC) [Concomitant]
     Route: 065
     Dates: start: 20120504, end: 20120815
  9. ZYRTEC [Concomitant]
     Active Substance: CETIRIZINE HYDROCHLORIDE
     Route: 065
     Dates: start: 20130314, end: 20131101
  10. KALNORMIN [Concomitant]
     Active Substance: POTASSIUM CHLORIDE
     Route: 065
     Dates: start: 20150217, end: 20150226
  11. LETROX [Concomitant]
     Active Substance: LEVOTHYROXINE SODIUM
     Route: 065
     Dates: start: 20150602
  12. OCRELIZUMAB [Suspect]
     Active Substance: OCRELIZUMAB
     Dosage: (WEEK 72)
     Route: 042
     Dates: start: 20130905, end: 20130905
  13. OCRELIZUMAB [Suspect]
     Active Substance: OCRELIZUMAB
     Dosage: (WEEK 24)
     Route: 042
     Dates: start: 20140918, end: 20140918
  14. PREDNISONE. [Concomitant]
     Active Substance: PREDNISONE
     Route: 065
     Dates: start: 20120111, end: 20120120
  15. DIFLUCAN [Concomitant]
     Active Substance: FLUCONAZOLE
     Route: 065
     Dates: start: 20120402, end: 20120402
  16. IBALGIN [Concomitant]
     Active Substance: IBUPROFEN
     Route: 065
     Dates: start: 20120425
  17. MACMIROR COMPLEX [Concomitant]
     Route: 065
     Dates: start: 20120515, end: 20120531
  18. ORTANOL [Concomitant]
     Active Substance: OMEPRAZOLE
     Route: 065
     Dates: start: 20130625
  19. AMOKSIKLAV [Concomitant]
     Active Substance: AMOXICILLIN\CLAVULANATE POTASSIUM
     Route: 065
     Dates: start: 20140324, end: 20140330
  20. CLARITINE [Concomitant]
     Active Substance: LORATADINE
     Route: 065
     Dates: start: 2005, end: 20130313
  21. SOLU-MEDROL [Concomitant]
     Active Substance: METHYLPREDNISOLONE SODIUM SUCCINATE
     Route: 065
     Dates: start: 20111223, end: 20111230
  22. SOLU-MEDROL [Concomitant]
     Active Substance: METHYLPREDNISOLONE SODIUM SUCCINATE
     Route: 065
     Dates: start: 20120127, end: 20120128
  23. PREDNISONE. [Concomitant]
     Active Substance: PREDNISONE
     Route: 065
     Dates: start: 20111231, end: 20120110
  24. DIAZEPAM. [Concomitant]
     Active Substance: DIAZEPAM
     Route: 065
     Dates: start: 20120127, end: 20120203
  25. VIGANTOL [Concomitant]
     Active Substance: CHOLECALCIFEROL
     Route: 065
     Dates: start: 20120203
  26. OCRELIZUMAB [Suspect]
     Active Substance: OCRELIZUMAB
     Dosage: (WEEK 2)
     Route: 042
     Dates: start: 20120503, end: 20120503
  27. OCRELIZUMAB [Suspect]
     Active Substance: OCRELIZUMAB
     Dosage: (WEEK 48)
     Route: 042
     Dates: start: 20130321, end: 20130321
  28. PLACEBO [Suspect]
     Active Substance: UNSPECIFIED INGREDIENT
     Indication: MULTIPLE SCLEROSIS RELAPSE
     Route: 058
     Dates: start: 20120419, end: 20140326
  29. OCRELIZUMAB [Suspect]
     Active Substance: OCRELIZUMAB
     Indication: MULTIPLE SCLEROSIS RELAPSE
     Dosage: (WEEK 0)
     Route: 042
     Dates: start: 20140403, end: 20140403
  30. DIAZEPAM. [Concomitant]
     Active Substance: DIAZEPAM
     Route: 065
     Dates: start: 20150709, end: 20150714
  31. SINUPRET FORTE [Concomitant]
     Route: 065
     Dates: start: 20130202, end: 20130208
  32. LETROX [Concomitant]
     Active Substance: LEVOTHYROXINE SODIUM
     Route: 065
     Dates: start: 20150218, end: 20150601
  33. ZINNAT [Concomitant]
     Active Substance: CEFUROXIME AXETIL
     Route: 065
     Dates: start: 20150225, end: 20150301
  34. CIPRINOL [Concomitant]
     Active Substance: CIPROFLOXACIN
     Route: 065
     Dates: start: 20160103, end: 20160106
  35. PREDNISONE. [Concomitant]
     Active Substance: PREDNISONE
     Route: 065
     Dates: start: 20150221, end: 20150222
  36. NEURONTIN (CZECH REPUBLIC) [Concomitant]
     Route: 065
     Dates: start: 20120220, end: 20120401
  37. DOXYBENE [Concomitant]
     Route: 065
     Dates: start: 20120328, end: 20120403
  38. THYROGEN [Concomitant]
     Active Substance: THYROTROPIN ALFA
     Route: 065
     Dates: start: 20150530, end: 20150531
  39. SODIUM IODIDE I-131 [Concomitant]
     Active Substance: SODIUM IODIDE I-131
     Route: 065
     Dates: start: 20150601, end: 20150601
  40. AKTIFERRIN (CZECH REPUBLIC) [Concomitant]
     Route: 065
     Dates: start: 20160129
  41. OCRELIZUMAB [Suspect]
     Active Substance: OCRELIZUMAB
     Dosage: (WEEK 24)
     Route: 042
     Dates: start: 20121004, end: 20121004
  42. SOLU-MEDROL [Concomitant]
     Active Substance: METHYLPREDNISOLONE SODIUM SUCCINATE
     Route: 065
     Dates: start: 20120130, end: 20120130
  43. SOLU-MEDROL [Concomitant]
     Active Substance: METHYLPREDNISOLONE SODIUM SUCCINATE
     Route: 065
     Dates: start: 20120201, end: 20120203
  44. SOLU-MEDROL [Concomitant]
     Active Substance: METHYLPREDNISOLONE SODIUM SUCCINATE
     Route: 065
     Dates: start: 20140306, end: 20140308
  45. SOLU-MEDROL [Concomitant]
     Active Substance: METHYLPREDNISOLONE SODIUM SUCCINATE
     Route: 065
     Dates: start: 20150713, end: 20150714
  46. PREDNISONE. [Concomitant]
     Active Substance: PREDNISONE
     Route: 065
     Dates: start: 20150219, end: 20150220
  47. DIFLUCAN [Concomitant]
     Active Substance: FLUCONAZOLE
     Route: 065
     Dates: start: 20130103
  48. FRAMYKOIN (BACITRACIN ZINC/NEOMYCIN SULFATE) [Concomitant]
     Route: 065
     Dates: start: 20120713, end: 20120720
  49. ACYLPYRIN [Concomitant]
     Route: 065
     Dates: start: 20120720, end: 20120727
  50. OCRELIZUMAB [Suspect]
     Active Substance: OCRELIZUMAB
     Dosage: (WEEK 2)
     Route: 042
     Dates: start: 20140417, end: 20140417
  51. PARALEN (CZECH REPUBLIC) [Concomitant]
     Indication: PREMEDICATION
     Route: 065
     Dates: start: 20120419, end: 20140918
  52. ZODAC [Concomitant]
     Active Substance: CETIRIZINE HYDROCHLORIDE
     Indication: PREMEDICATION
     Route: 065
     Dates: start: 20120419, end: 20140918
  53. METHYLPREDNISOLONE. [Concomitant]
     Active Substance: METHYLPREDNISOLONE
     Indication: PREMEDICATION
     Route: 065
     Dates: start: 20120419, end: 20140918
  54. PREDNISONE. [Concomitant]
     Active Substance: PREDNISONE
     Route: 065
     Dates: start: 20120121, end: 20120219
  55. PREDNISONE. [Concomitant]
     Active Substance: PREDNISONE
     Route: 065
     Dates: start: 20150223, end: 20150224
  56. PREDNISONE. [Concomitant]
     Active Substance: PREDNISONE
     Route: 065
     Dates: start: 20150225, end: 20150226
  57. OCRELIZUMAB [Suspect]
     Active Substance: OCRELIZUMAB
     Indication: MULTIPLE SCLEROSIS RELAPSE
     Dosage: (WEEK 1)
     Route: 042
     Dates: start: 20120419, end: 20120419

REACTIONS (1)
  - Cystitis [Recovered/Resolved]

NARRATIVE: CASE EVENT DATE: 20151224
